FAERS Safety Report 9627029 (Version 1)
Quarter: 2013Q4

REPORT INFORMATION
  Report Type: Spontaneous
  Country: US (occurrence: None)
  Receive Date: 20131011
  Receipt Date: 20131011
  Transmission Date: 20140711
  Serious: Yes (Hospitalization)
  Sender: FDA-Public Use
  Company Number: 2013P1019611

PATIENT
  Age: 66 Year
  Sex: Female

DRUGS (9)
  1. INFUMORPH [Suspect]
     Indication: SPINAL PAIN
     Route: 037
  2. BABY ASPIRIN [Concomitant]
  3. BUPROPION [Concomitant]
  4. LEVOTHYROXINE [Concomitant]
  5. METOPROLOL [Concomitant]
  6. NIASPAN [Concomitant]
  7. OXYBUTYNIN [Concomitant]
  8. GABAPENTIN [Concomitant]
  9. GENERIC SINEMET (CARBIDOPA-LEVODOPA) [Concomitant]

REACTIONS (14)
  - Hypersomnia [None]
  - Asthenia [None]
  - Feeling abnormal [None]
  - Somnolence [None]
  - Dizziness [None]
  - Dizziness [None]
  - Somnolence [None]
  - Overdose [None]
  - Incorrect dose administered by device [None]
  - Unresponsive to stimuli [None]
  - Thinking abnormal [None]
  - Posture abnormal [None]
  - Vomiting [None]
  - Dehydration [None]
